FAERS Safety Report 24622180 (Version 2)
Quarter: 2024Q4

REPORT INFORMATION
  Report Type: Spontaneous
  Country: US (occurrence: US)
  Receive Date: 20241114
  Receipt Date: 20241125
  Transmission Date: 20250114
  Serious: No
  Sender: ARGENX BVBA
  Company Number: US-ARGENX-2024-ARGX-US009860

PATIENT

DRUGS (1)
  1. VYVGART [Suspect]
     Active Substance: EFGARTIGIMOD ALFA-FCAB
     Indication: Myasthenia gravis
     Dosage: UNK UNK, 1/WEEK FOR AN HOUR
     Route: 042
     Dates: start: 20220518

REACTIONS (5)
  - Eyelid ptosis [Unknown]
  - Dysarthria [Unknown]
  - Dysphagia [Unknown]
  - Diplopia [Unknown]
  - Poor venous access [Unknown]
